FAERS Safety Report 19625668 (Version 2)
Quarter: 2021Q3

REPORT INFORMATION
  Report Type: Spontaneous
  Country: US (occurrence: US)
  Receive Date: 20210729
  Receipt Date: 20210901
  Transmission Date: 20211014
  Serious: No
  Sender: FDA-Public Use
  Company Number: US-ELI_LILLY_AND_COMPANY-US202107011893

PATIENT
  Sex: Female

DRUGS (1)
  1. REYVOW [Suspect]
     Active Substance: LASMIDITAN
     Indication: MIGRAINE
     Dosage: 100 MG, UNKNOWN
     Route: 065
     Dates: start: 2019

REACTIONS (1)
  - No adverse event [Unknown]
